FAERS Safety Report 8088825-5 (Version None)
Quarter: 2012Q1

REPORT INFORMATION
  Report Type: 
  Country: None (occurrence: None)
  Receive Date: 20120128
  Receipt Date: 20110407
  Transmission Date: 20120608
  Serious: No
  Sender: FDA-Public Use
  Company Number: US-ABBOTT-11P-163-0717089-00

PATIENT
  Sex: Female
  Weight: 67.192 kg

DRUGS (11)
  1. SPIRIVA [Concomitant]
     Indication: CHRONIC OBSTRUCTIVE PULMONARY DISEASE
  2. BYSTOLIC [Concomitant]
     Indication: HYPERTENSION
  3. ASPIRIN [Concomitant]
     Indication: ROUTINE HEALTH MAINTENANCE
  4. FOLBIC [Concomitant]
     Indication: VITAMIN SUPPLEMENTATION
  5. MAG OX [Concomitant]
     Indication: MINERAL SUPPLEMENTATION
  6. HUMIRA [Suspect]
     Indication: PSORIATIC ARTHROPATHY
     Dates: start: 20110330
  7. VITAMIN D [Concomitant]
     Indication: VITAMIN D DEFICIENCY
  8. DIOVAN [Concomitant]
     Indication: HYPERTENSION
  9. CITRICAL [Concomitant]
     Indication: VITAMIN SUPPLEMENTATION
  10. HYDROCHLOROTHIAZIDE [Concomitant]
     Indication: PRODUCT USED FOR UNKNOWN INDICATION
  11. POTASSIUM [Concomitant]
     Indication: MINERAL SUPPLEMENTATION

REACTIONS (1)
  - OEDEMA PERIPHERAL [None]
